FAERS Safety Report 9296408 (Version 1)
Quarter: 2013Q2

REPORT INFORMATION
  Report Type: Spontaneous
  Country: KE (occurrence: KE)
  Receive Date: 20130517
  Receipt Date: 20130517
  Transmission Date: 20140414
  Serious: Yes (Other)
  Sender: FDA-Public Use
  Company Number: KE-ACTAVIS-2013-08434

PATIENT
  Age: 3 Month
  Sex: Male
  Weight: 6 kg

DRUGS (7)
  1. BUPIVACAINE (UNKNOWN) [Suspect]
     Indication: LOCAL ANAESTHESIA
     Dosage: 4 MG/KG, SINGLE, (0.5%) 5 ML
     Route: 058
  2. PHENYTOIN (AMALLC) [Interacting]
     Indication: GRAND MAL CONVULSION
     Dosage: UNK
     Route: 042
  3. LIGNOCAINE                         /00033401/ [Concomitant]
     Indication: LOCAL ANAESTHESIA
     Dosage: UNK. 2 %, 5 ML
     Route: 058
  4. HALOTHANE [Concomitant]
     Indication: GENERAL ANAESTHESIA
     Dosage: UNK
     Route: 065
  5. ATRACURIUM [Concomitant]
     Indication: GENERAL ANAESTHESIA
     Dosage: UNK
     Route: 065
  6. FENTANYL [Concomitant]
     Indication: GENERAL ANAESTHESIA
     Dosage: UNK
     Route: 065
  7. MORPHINE [Concomitant]
     Indication: GENERAL ANAESTHESIA
     Dosage: UNK
     Route: 065

REACTIONS (8)
  - Grand mal convulsion [Recovered/Resolved]
  - Bradyarrhythmia [Recovered/Resolved]
  - Atrioventricular block [Recovered/Resolved]
  - Ventricular extrasystoles [Recovered/Resolved]
  - Ventricular tachycardia [Recovered/Resolved]
  - Ventricular fibrillation [Recovered/Resolved]
  - Incorrect dose administered [Recovered/Resolved]
  - Drug interaction [Recovered/Resolved]
